FAERS Safety Report 8063618-3 (Version None)
Quarter: 2012Q1

REPORT INFORMATION
  Report Type: 
  Country: None (occurrence: None)
  Receive Date: 20120123
  Receipt Date: 20120116
  Transmission Date: 20120608
  Serious: Yes (Hospitalization)
  Sender: FDA-Public Use
  Company Number: IQ-ABBOTT-12P-081-0893701-00

PATIENT
  Age: 40 Year
  Sex: Male
  Weight: 68 kg

DRUGS (2)
  1. HUMIRA [Suspect]
     Route: 058
     Dates: start: 20110801
  2. HUMIRA [Suspect]
     Indication: CROHN'S DISEASE
     Route: 058

REACTIONS (6)
  - INTESTINAL STENOSIS [None]
  - DECREASED APPETITE [None]
  - CONSTIPATION [None]
  - ABDOMINAL PAIN [None]
  - WEIGHT DECREASED [None]
  - INTESTINAL ULCER [None]
